FAERS Safety Report 7072934-3 (Version None)
Quarter: 2010Q4

REPORT INFORMATION
  Report Type: 
  Country: None (occurrence: None)
  Receive Date: 20101029
  Receipt Date: 20100402
  Transmission Date: 20110411
  Serious: No
  Sender: FDA-Public Use
  Company Number: A0853214A

PATIENT
  Age: 67 Year
  Sex: Female

DRUGS (2)
  1. ADVAIR DISKUS 100/50 [Suspect]
     Indication: ASTHMA
     Dosage: 1PUFF THREE TIMES PER WEEK
     Route: 055
     Dates: start: 20070101
  2. VITAMINS [Concomitant]

REACTIONS (4)
  - GASTRITIS [None]
  - ILL-DEFINED DISORDER [None]
  - OESOPHAGEAL CANDIDIASIS [None]
  - OESOPHAGITIS [None]
